FAERS Safety Report 22077064 (Version 7)
Quarter: 2024Q1

REPORT INFORMATION
  Report Type: Report from Study
  Country: CA (occurrence: CA)
  Receive Date: 20230309
  Receipt Date: 20240227
  Transmission Date: 20240410
  Serious: Yes (Hospitalization, Other)
  Sender: FDA-Public Use
  Company Number: CA-ABBVIE-4140955

PATIENT
  Age: 69 Year
  Sex: Female

DRUGS (5)
  1. SKYRIZI [Suspect]
     Active Substance: RISANKIZUMAB-RZAA
     Indication: Psoriasis
     Dosage: FORM STRENGTH: 75 MILLIGRAM
     Route: 058
     Dates: start: 20220622
  2. SKYRIZI [Suspect]
     Active Substance: RISANKIZUMAB-RZAA
     Indication: Psoriatic arthropathy
     Dosage: FORM STRENGTH: 75 MILLIGRAM
     Route: 058
  3. SKYRIZI [Suspect]
     Active Substance: RISANKIZUMAB-RZAA
     Indication: Psoriasis
     Dosage: FORM STRENGTH WAS 75 MILLIGRAM
     Route: 058
  4. PAXLOVID [Concomitant]
     Active Substance: NIRMATRELVIR\RITONAVIR
     Indication: Product used for unknown indication
  5. KENALOG [Concomitant]
     Active Substance: TRIAMCINOLONE ACETONIDE
     Indication: Product used for unknown indication
     Route: 065
     Dates: start: 2023, end: 2023

REACTIONS (36)
  - Eye disorder [Unknown]
  - COVID-19 [Recovered/Resolved]
  - Retinal vein occlusion [Unknown]
  - Nasopharyngitis [Unknown]
  - Night sweats [Unknown]
  - Immunodeficiency [Unknown]
  - Diplopia [Unknown]
  - Transient ischaemic attack [Unknown]
  - Flank pain [Unknown]
  - Insomnia [Unknown]
  - Headache [Recovered/Resolved]
  - Pollakiuria [Unknown]
  - Blood alkaline phosphatase increased [Unknown]
  - Drug tolerance decreased [Unknown]
  - Inflammation [Unknown]
  - Eye pruritus [Unknown]
  - Eye pain [Unknown]
  - Dizziness [Unknown]
  - Pruritus [Not Recovered/Not Resolved]
  - Skin ulcer [Unknown]
  - Herpes zoster [Unknown]
  - Sinusitis [Unknown]
  - Eye swelling [Unknown]
  - Pain of skin [Unknown]
  - Hepatic enzyme increased [Unknown]
  - Abdominal pain [Unknown]
  - Chromaturia [Unknown]
  - Frequent bowel movements [Unknown]
  - Tinea infection [Unknown]
  - Asthenia [Unknown]
  - Gastrointestinal infection [Unknown]
  - Night sweats [Unknown]
  - Abdominal pain lower [Unknown]
  - Hepatic pain [Unknown]
  - Rash [Not Recovered/Not Resolved]
  - Rash [Recovering/Resolving]

NARRATIVE: CASE EVENT DATE: 20220801
